FAERS Safety Report 5269669-6 (Version None)
Quarter: 2007Q1

REPORT INFORMATION
  Report Type: 
  Country: None (occurrence: None)
  Receive Date: 20070320
  Receipt Date: 20070314
  Transmission Date: 20070707
  Serious: Yes (Death, Congenital Anomaly)
  Sender: FDA-Public Use
  Company Number: NO-BRISTOL-MYERS SQUIBB COMPANY-13717780

PATIENT

DRUGS (2)
  1. METFORMIN HCL [Suspect]
     Indication: POLYCYSTIC OVARIES
     Route: 064
  2. ASPIRIN [Concomitant]
     Indication: PROPHYLAXIS
     Route: 064

REACTIONS (3)
  - DRUG EXPOSURE DURING PREGNANCY [None]
  - HYDROPS FOETALIS [None]
  - INTRA-UTERINE DEATH [None]
